FAERS Safety Report 4298577-2 (Version None)
Quarter: 2004Q1

REPORT INFORMATION
  Report Type: 
  Country: None (occurrence: None)
  Receive Date: 20040126
  Receipt Date: 20031022
  Transmission Date: 20041129
  Serious: No
  Sender: FDA-Public Use
  Company Number: USA031050580

PATIENT
  Age: 7 Year
  Sex: Female
  Weight: 18 kg

DRUGS (1)
  1. STRATTERA [Suspect]
     Dosage: 25 MG/DAY
     Dates: start: 20030901

REACTIONS (9)
  - ABNORMAL BEHAVIOUR [None]
  - AGGRESSION [None]
  - DECREASED APPETITE [None]
  - DISTURBANCE IN ATTENTION [None]
  - FATIGUE [None]
  - INSOMNIA [None]
  - MOOD SWINGS [None]
  - MYDRIASIS [None]
  - PSYCHOMOTOR HYPERACTIVITY [None]
